FAERS Safety Report 9681660 (Version 1)
Quarter: 2013Q4

REPORT INFORMATION
  Report Type: Spontaneous
  Country: US (occurrence: US)
  Receive Date: 20131111
  Receipt Date: 20131111
  Transmission Date: 20140711
  Serious: Yes (Other)
  Sender: FDA-Public Use
  Company Number: PHHY2013US125862

PATIENT
  Age: 26 Year
  Sex: Female

DRUGS (1)
  1. PARACETAMOL [Suspect]

REACTIONS (6)
  - Analgesic drug level increased [Unknown]
  - Toxicity to various agents [Unknown]
  - Hepatitis [Unknown]
  - Liver injury [Unknown]
  - Coagulopathy [Unknown]
  - Overdose [Unknown]
